FAERS Safety Report 20095032 (Version 2)
Quarter: 2021Q4

REPORT INFORMATION
  Report Type: Spontaneous
  Country: JP (occurrence: JP)
  Receive Date: 20211122
  Receipt Date: 20211214
  Transmission Date: 20220304
  Serious: Yes (Death, Hospitalization, Other)
  Sender: FDA-Public Use
  Company Number: JP-ALXN-A202111453

PATIENT
  Age: 64 Year
  Sex: Female
  Weight: 46 kg

DRUGS (11)
  1. SOLIRIS [Suspect]
     Active Substance: ECULIZUMAB
     Indication: Atypical haemolytic uraemic syndrome
     Dosage: 900 MG, QW
     Route: 042
     Dates: start: 20211013, end: 20211018
  2. CELLCEPT [Suspect]
     Active Substance: MYCOPHENOLATE MOFETIL
     Indication: Immunosuppressant drug therapy
     Dosage: 500 MG, BID
     Route: 048
     Dates: start: 20210801, end: 20211028
  3. TACROLIMUS [Suspect]
     Active Substance: TACROLIMUS
     Indication: Immunosuppressant drug therapy
     Dosage: 1 MG, QD
     Route: 048
     Dates: start: 20210917, end: 20211028
  4. CARPERITIDE [Suspect]
     Active Substance: CARPERITIDE
     Indication: Immunosuppressant drug therapy
     Dosage: 2000 ?G, CONTINUOUS
     Route: 042
     Dates: start: 20211013, end: 20211028
  5. HEPARIN [Suspect]
     Active Substance: HEPARIN SODIUM
     Indication: Immunosuppressant drug therapy
     Dosage: 20000 IU, CONTINUOUS
     Route: 042
     Dates: start: 20211015, end: 20211028
  6. FUROSEMIDE [Suspect]
     Active Substance: FUROSEMIDE
     Indication: Immunosuppressant drug therapy
     Dosage: 40 MG, BID
     Route: 048
     Dates: start: 20211018, end: 20211028
  7. ATOVAQUONE [Suspect]
     Active Substance: ATOVAQUONE
     Indication: Immunosuppressant drug therapy
     Dosage: 10 ML, QD
     Route: 065
     Dates: start: 20211018, end: 20211028
  8. PREDONINE [Suspect]
     Active Substance: PREDNISOLONE
     Indication: Immunosuppressant drug therapy
     Dosage: 20 MG, QD
     Route: 048
     Dates: start: 20211018, end: 20211028
  9. CERTICAN [Suspect]
     Active Substance: EVEROLIMUS
     Indication: Product used for unknown indication
     Dosage: 2 MG, BID
     Route: 048
     Dates: start: 20211020, end: 20211028
  10. SOLU-MEDROL [Suspect]
     Active Substance: METHYLPREDNISOLONE SODIUM SUCCINATE
     Indication: Product used for unknown indication
     Dosage: 250 MG, QD
     Route: 042
     Dates: start: 20211024, end: 20211028
  11. MEROPENEM [Suspect]
     Active Substance: MEROPENEM
     Indication: Product used for unknown indication
     Dosage: 2 G, BID
     Route: 042
     Dates: start: 20211028, end: 20211028

REACTIONS (2)
  - Renal impairment [Fatal]
  - Escherichia sepsis [Fatal]

NARRATIVE: CASE EVENT DATE: 20211018
